FAERS Safety Report 16749605 (Version 1)
Quarter: 2019Q3

REPORT INFORMATION
  Report Type: Spontaneous
  Country: US (occurrence: US)
  Receive Date: 20190828
  Receipt Date: 20190828
  Transmission Date: 20191005
  Serious: Yes (Other)
  Sender: FDA-Public Use
  Company Number: US-HORIZON-PRE-0389-2019

PATIENT
  Age: 63 Year
  Sex: Female
  Weight: 70.31 kg

DRUGS (5)
  1. OPSUMIT [Concomitant]
     Active Substance: MACITENTAN
  2. ELIQUIS [Concomitant]
     Active Substance: APIXABAN
  3. PREDNISONE. [Suspect]
     Active Substance: PREDNISONE
     Indication: PRODUCT USED FOR UNKNOWN INDICATION
  4. REVATIO [Concomitant]
     Active Substance: SILDENAFIL CITRATE
  5. REMODULIN [Suspect]
     Active Substance: TREPROSTINIL
     Indication: PULMONARY ARTERIAL HYPERTENSION
     Dosage: 58NG/KG/MIN
     Route: 042
     Dates: start: 20171206

REACTIONS (2)
  - Weight increased [Unknown]
  - Facial paralysis [Unknown]
